FAERS Safety Report 6428470-8 (Version None)
Quarter: 2009Q4

REPORT INFORMATION
  Report Type: 
  Country: None (occurrence: None)
  Receive Date: 20091105
  Receipt Date: 20091028
  Transmission Date: 20100525
  Serious: Yes (Hospitalization)
  Sender: FDA-Public Use
  Company Number: B0601235A

PATIENT
  Sex: Female

DRUGS (9)
  1. ZINACEF [Suspect]
     Indication: ANTIBIOTIC PROPHYLAXIS
     Route: 042
     Dates: start: 20091020, end: 20091020
  2. METRONIDAZOLE [Suspect]
     Indication: ANTIBIOTIC PROPHYLAXIS
     Route: 042
     Dates: start: 20091020, end: 20091020
  3. ACETAMINOPHEN [Concomitant]
     Indication: PREMEDICATION
     Route: 065
     Dates: start: 20091020, end: 20091020
  4. DEXAMETHASONE [Concomitant]
     Indication: PREMEDICATION
     Route: 048
     Dates: start: 20091020, end: 20091020
  5. ULTIVA [Concomitant]
     Indication: DRUG USE FOR UNKNOWN INDICATION
     Route: 065
     Dates: start: 20091020, end: 20091020
  6. SOLU-CORTEF [Concomitant]
     Indication: PREMEDICATION
     Route: 042
     Dates: start: 20091020, end: 20091020
  7. POSTAFEN [Concomitant]
     Indication: PREMEDICATION
     Route: 065
     Dates: start: 20091020, end: 20091020
  8. PROPOFOL [Concomitant]
     Indication: DRUG USE FOR UNKNOWN INDICATION
     Route: 065
     Dates: start: 20091020, end: 20091020
  9. EFEDRIN [Concomitant]
     Route: 065
     Dates: start: 20091020, end: 20091020

REACTIONS (4)
  - FLUSHING [None]
  - HYPERSENSITIVITY [None]
  - PRURITUS [None]
  - SINUS TACHYCARDIA [None]
